FAERS Safety Report 23512980 (Version 1)
Quarter: 2024Q1

REPORT INFORMATION
  Report Type: Spontaneous
  Country: US (occurrence: US)
  Receive Date: 20240212
  Receipt Date: 20240212
  Transmission Date: 20240409
  Serious: No
  Sender: FDA-Public Use
  Company Number: US-LEADIANT BIOSCIENCES INC-2023STPI000084

PATIENT
  Sex: Male

DRUGS (1)
  1. CARNITOR [Suspect]
     Active Substance: LEVOCARNITINE
     Indication: Lennox-Gastaut syndrome
     Dosage: 330 MILLIGRAM, TAKE 1 TABLET DAILY
     Route: 048

REACTIONS (1)
  - Diarrhoea [Recovered/Resolved]
